FAERS Safety Report 12311959 (Version 2)
Quarter: 2016Q2

REPORT INFORMATION
  Report Type: Spontaneous
  Country: RU (occurrence: RU)
  Receive Date: 20160427
  Receipt Date: 20160527
  Transmission Date: 20160815
  Serious: Yes (Other)
  Sender: FDA-Public Use
  Company Number: RU-BRISTOL-MYERS SQUIBB COMPANY-BMS-2016-027345

PATIENT
  Age: 31 Year
  Sex: Female
  Weight: 60 kg

DRUGS (5)
  1. EPIVIR [Suspect]
     Active Substance: LAMIVUDINE
     Indication: HIV INFECTION
     Dosage: 150 MG, QD
     Route: 048
     Dates: start: 20100310, end: 20160226
  2. INVIRASE [Suspect]
     Active Substance: SAQUINAVIR MESYLATE
     Indication: HIV INFECTION
     Dosage: 500 MG, QD
     Route: 048
     Dates: start: 20110504, end: 20160226
  3. VIDEX [Suspect]
     Active Substance: DIDANOSINE
     Dosage: 400 MG, QD
     Route: 048
     Dates: end: 20160226
  4. VIDEX [Suspect]
     Active Substance: DIDANOSINE
     Indication: HIV INFECTION
     Dosage: 250 MG, QD
     Route: 048
     Dates: start: 20100427
  5. RITONAVIR. [Suspect]
     Active Substance: RITONAVIR
     Indication: HIV INFECTION
     Dosage: 100 MG, QD
     Route: 065
     Dates: start: 20110504, end: 20160226

REACTIONS (7)
  - Maternal exposure during pregnancy [Recovered/Resolved]
  - Oesophageal varices haemorrhage [Unknown]
  - Haemorrhagic anaemia [Unknown]
  - Premature delivery [Unknown]
  - Off label use [Unknown]
  - Caesarean section [Unknown]
  - Anaemia [Unknown]

NARRATIVE: CASE EVENT DATE: 201508
